FAERS Safety Report 9132976 (Version 5)
Quarter: 2013Q3

REPORT INFORMATION
  Report Type: Spontaneous
  Country: US (occurrence: US)
  Receive Date: 20130301
  Receipt Date: 20130704
  Transmission Date: 20140515
  Serious: Yes (Other)
  Sender: FDA-Public Use
  Company Number: CHPA2013US003711

PATIENT
  Age: 72 Year
  Sex: Female

DRUGS (1)
  1. VOLTAREN GEL [Suspect]
     Indication: ARTHRALGIA
     Dosage: UNK, 1-2 TIMES DAILY
     Route: 061
     Dates: start: 201201

REACTIONS (6)
  - Urinary tract infection [Recovered/Resolved]
  - Arthralgia [Unknown]
  - Off label use [Unknown]
  - Therapeutic response unexpected [Unknown]
  - Disease recurrence [Unknown]
  - Wrong technique in drug usage process [Unknown]
